FAERS Safety Report 21032341 (Version 5)
Quarter: 2023Q1

REPORT INFORMATION
  Report Type: Spontaneous
  Country: US (occurrence: US)
  Receive Date: 20220701
  Receipt Date: 20230314
  Transmission Date: 20230418
  Serious: Yes (Other)
  Sender: FDA-Public Use
  Company Number: US-PFIZER INC-2021256878

PATIENT
  Age: 63 Year
  Sex: Female
  Weight: 54.43 kg

DRUGS (11)
  1. ESTRING [Suspect]
     Active Substance: ESTRADIOL
     Indication: Bladder prolapse
     Dosage: 2 MG (1 RING (2 MG) VAGINALLY EVERY 3 MONTHS)
     Route: 067
     Dates: start: 2018
  2. ESTRING [Suspect]
     Active Substance: ESTRADIOL
     Indication: Hypertonic bladder
  3. ESTRING [Suspect]
     Active Substance: ESTRADIOL
     Indication: Atrophy
  4. ESTRING [Suspect]
     Active Substance: ESTRADIOL
     Indication: Vaginal pessary insertion
  5. ESTRING [Suspect]
     Active Substance: ESTRADIOL
     Indication: Pollakiuria
  6. DETROL LA [Concomitant]
     Active Substance: TOLTERODINE TARTRATE
     Indication: Pollakiuria
     Dosage: 4 MG, DAILY (TAKE 4 MG BY MOUTH DAILY-ORAL)
     Route: 048
  7. DETROL LA [Concomitant]
     Active Substance: TOLTERODINE TARTRATE
     Dosage: 4 MG, DAILY (TAKE 4 MG BY MOUTH DAILY-ORAL)
     Route: 048
  8. ANASTROZOLE [Concomitant]
     Active Substance: ANASTROZOLE
     Indication: Breast cancer
     Dosage: UNK
  9. TOZINAMERAN [Concomitant]
     Active Substance: TOZINAMERAN
     Indication: COVID-19 immunisation
     Dosage: DOSE NUMBER UNKNOWN, SINGLE
  10. WELLBUTRIN XL [Concomitant]
     Active Substance: BUPROPION HYDROCHLORIDE
     Dosage: 450 MG
  11. ARMOUR THYROID [Concomitant]
     Active Substance: THYROID, PORCINE
     Dosage: 90 MG ONCE A DAY

REACTIONS (8)
  - Drug dependence [Unknown]
  - Urinary incontinence [Unknown]
  - Drug ineffective for unapproved indication [Unknown]
  - Counterfeit product administered [Unknown]
  - Contraindicated product administered [Unknown]
  - Off label use [Unknown]
  - Drug effective for unapproved indication [Unknown]
  - Product prescribing error [Unknown]

NARRATIVE: CASE EVENT DATE: 20180101
